FAERS Safety Report 6121237-X (Version None)
Quarter: 2009Q1

REPORT INFORMATION
  Report Type: 
  Country: None (occurrence: None)
  Receive Date: 20090313
  Receipt Date: 20090306
  Transmission Date: 20090719
  Serious: Yes (Hospitalization, Other)
  Sender: FDA-Public Use
  Company Number: 2009AL001375

PATIENT
  Age: 42 Year
  Sex: Male

DRUGS (1)
  1. TRAMADOL HCL [Suspect]
     Dosage: 200 MG; QD;
     Dates: start: 20030902, end: 20080902

REACTIONS (2)
  - MOOD ALTERED [None]
  - PSYCHOTIC DISORDER [None]
